FAERS Safety Report 14734495 (Version 1)
Quarter: 2018Q2

REPORT INFORMATION
  Report Type: Report from Study
  Country: FI (occurrence: FI)
  Receive Date: 20180409
  Receipt Date: 20180409
  Transmission Date: 20180711
  Serious: Yes (Other)
  Sender: FDA-Public Use
  Company Number: FI-MYLANLABS-2018M1018250

PATIENT
  Age: 65 Year
  Sex: Female

DRUGS (2)
  1. LEPONEX [Suspect]
     Active Substance: CLOZAPINE
     Dosage: UNK
     Dates: start: 20180314
  2. LEPONEX [Suspect]
     Active Substance: CLOZAPINE
     Indication: SCHIZOPHRENIA
     Dosage: UNK
     Dates: end: 201803

REACTIONS (4)
  - Paranoia [Unknown]
  - Refusal of treatment by patient [Unknown]
  - Contusion [Unknown]
  - Aggression [Unknown]

NARRATIVE: CASE EVENT DATE: 201803
